FAERS Safety Report 5396674-1 (Version None)
Quarter: 2007Q3

REPORT INFORMATION
  Report Type: 
  Country: None (occurrence: None)
  Receive Date: 20070725
  Receipt Date: 20070719
  Transmission Date: 20080115
  Serious: Yes (Hospitalization)
  Sender: FDA-Public Use
  Company Number: Z0000312A

PATIENT
  Age: 76 Year
  Sex: Female
  Weight: 77.3 kg

DRUGS (3)
  1. LAPATINIB [Suspect]
     Dosage: 1000MG PER DAY
     Route: 048
     Dates: start: 20061020, end: 20070208
  2. TRASTUZUMAB [Suspect]
     Route: 042
     Dates: start: 20061020
  3. ABRAXANE [Suspect]
     Dosage: 100MGM2 WEEKLY
     Route: 042
     Dates: start: 20070208, end: 20070215

REACTIONS (3)
  - DEHYDRATION [None]
  - DIVERTICULITIS [None]
  - FEBRILE NEUTROPENIA [None]
